FAERS Safety Report 15298292 (Version 2)
Quarter: 2018Q3

REPORT INFORMATION
  Report Type: Spontaneous
  Country: JP (occurrence: JP)
  Receive Date: 20180820
  Receipt Date: 20180927
  Transmission Date: 20181010
  Serious: Yes (Other)
  Sender: FDA-Public Use
  Company Number: JP-AMGEN-JPNSP2018114380

PATIENT
  Sex: Female

DRUGS (1)
  1. ENBREL [Suspect]
     Active Substance: ETANERCEPT
     Indication: PRODUCT USED FOR UNKNOWN INDICATION
     Dosage: UNK, ONCE WEEKLY
     Route: 065
     Dates: start: 20180330

REACTIONS (7)
  - Cough [Unknown]
  - Condition aggravated [Unknown]
  - Dysphonia [Unknown]
  - Malaise [Unknown]
  - Productive cough [Unknown]
  - Blood pressure increased [Unknown]
  - Palpitations [Unknown]
